FAERS Safety Report 7283583-6 (Version None)
Quarter: 2011Q1

REPORT INFORMATION
  Report Type: 
  Country: None (occurrence: None)
  Receive Date: 20110209
  Receipt Date: 20110201
  Transmission Date: 20110831
  Serious: Yes (Hospitalization)
  Sender: FDA-Public Use
  Company Number: A0909568A

PATIENT
  Age: 72 Year
  Sex: Female

DRUGS (4)
  1. RED BLOOD CELLS [Concomitant]
  2. ROCEPHIN [Concomitant]
     Route: 042
  3. CLINDAMYCIN [Concomitant]
     Route: 048
  4. ELTROMBOPAG [Suspect]
     Indication: THROMBOCYTOPENIA
     Dosage: 50MG PER DAY
     Route: 048
     Dates: start: 20101220

REACTIONS (9)
  - HYPOTENSION [None]
  - RASH GENERALISED [None]
  - THROMBOCYTOPENIA [None]
  - CELLULITIS [None]
  - FEBRILE NEUTROPENIA [None]
  - SEPSIS [None]
  - LEUKOPENIA [None]
  - TOXIC SHOCK SYNDROME [None]
  - ADVERSE DRUG REACTION [None]
